FAERS Safety Report 7577873-7 (Version None)
Quarter: 2011Q2

REPORT INFORMATION
  Report Type: 
  Country: None (occurrence: None)
  Receive Date: 20110628
  Receipt Date: 20110617
  Transmission Date: 20111010
  Serious: Yes (Other)
  Sender: FDA-Public Use
  Company Number: PHHY2011US34222

PATIENT
  Sex: Female
  Weight: 113.38 kg

DRUGS (2)
  1. GILENYA [Suspect]
     Indication: MULTIPLE SCLEROSIS
     Dosage: 0.5 MG, DAILY
     Route: 048
     Dates: start: 20110401, end: 20110602
  2. SYNTHROID [Concomitant]
     Dosage: UNK UKN, UNK

REACTIONS (6)
  - ARRHYTHMIA [None]
  - HEART RATE IRREGULAR [None]
  - THIRST [None]
  - THYROID FUNCTION TEST ABNORMAL [None]
  - DRY MOUTH [None]
  - BLOOD TRIGLYCERIDES INCREASED [None]
